FAERS Safety Report 4622825-X (Version None)
Quarter: 2005Q1

REPORT INFORMATION
  Report Type: 
  Country: None (occurrence: None)
  Receive Date: 20050328
  Receipt Date: 20050328
  Transmission Date: 20050727
  Serious: Yes (Other)
  Sender: FDA-Public Use
  Company Number: None

PATIENT
  Age: 68 Year
  Sex: Female

DRUGS (9)
  1. VINCRISTINE [Suspect]
     Indication: NON-SMALL CELL LUNG CANCER
     Dosage: 1.4 MG/M2
  2. ASPIRIN [Concomitant]
  3. PLAVIX [Concomitant]
  4. PREMARIN [Concomitant]
  5. ATENOLOL [Concomitant]
  6. POTASSIUM CHLORIDE [Concomitant]
  7. HYDROCHLOROTHIAZIDE [Concomitant]
  8. LEVOTHYROXINE [Concomitant]
  9. ALLOPURINOL [Concomitant]

REACTIONS (1)
  - REVERSIBLE POSTERIOR LEUKOENCEPHALOPATHY SYNDROME [None]
